FAERS Safety Report 19738249 (Version 1)
Quarter: 2021Q3

REPORT INFORMATION
  Report Type: Spontaneous
  Country: US (occurrence: US)
  Receive Date: 20210824
  Receipt Date: 20210824
  Transmission Date: 20211014
  Serious: Yes (Other)
  Sender: FDA-Public Use
  Company Number: NVSC2021US188277

PATIENT
  Sex: Female

DRUGS (1)
  1. KESIMPTA [Suspect]
     Active Substance: OFATUMUMAB
     Indication: RELAPSING MULTIPLE SCLEROSIS
     Dosage: UNK, QW
     Route: 065
     Dates: start: 20210815

REACTIONS (7)
  - Pyrexia [Unknown]
  - Seizure [Unknown]
  - Chills [Unknown]
  - Palpitations [Unknown]
  - Nasopharyngitis [Unknown]
  - Insomnia [Unknown]
  - Urine output increased [Unknown]
